FAERS Safety Report 4791585-4 (Version None)
Quarter: 2005Q4

REPORT INFORMATION
  Report Type: 
  Country: None (occurrence: None)
  Receive Date: 20051007
  Receipt Date: 20050412
  Transmission Date: 20060501
  Serious: No
  Sender: FDA-Public Use
  Company Number: US-BRISTOL-MYERS SQUIBB COMPANY-12933107

PATIENT
  Age: 6 Decade
  Sex: Male

DRUGS (1)
  1. AVAPRO [Suspect]

REACTIONS (1)
  - ERECTILE DYSFUNCTION [None]
